FAERS Safety Report 17769715 (Version 1)
Quarter: 2020Q2

REPORT INFORMATION
  Report Type: Spontaneous
  Country: US (occurrence: US)
  Receive Date: 20200511
  Receipt Date: 20200511
  Transmission Date: 20200714
  Serious: Yes (Hospitalization)
  Sender: FDA-Public Use
  Company Number: None

PATIENT
  Sex: Female

DRUGS (17)
  1. ELIQUIS [Concomitant]
     Active Substance: APIXABAN
  2. ISOSORB [Concomitant]
  3. JANUVIA [Concomitant]
     Active Substance: SITAGLIPTIN PHOSPHATE
  4. OMEPRAZOLE. [Concomitant]
     Active Substance: OMEPRAZOLE
  5. DILTIAZEM. [Concomitant]
     Active Substance: DILTIAZEM
  6. FLUTICASONE. [Concomitant]
     Active Substance: FLUTICASONE
  7. METOPROLOL. [Concomitant]
     Active Substance: METOPROLOL
  8. FUROSEMIDE. [Concomitant]
     Active Substance: FUROSEMIDE
  9. POT CHLORIDE [Concomitant]
     Active Substance: POTASSIUM CHLORIDE
  10. ENTECAVIR. [Suspect]
     Active Substance: ENTECAVIR
     Indication: PRODUCT USED FOR UNKNOWN INDICATION
     Route: 048
     Dates: start: 20191029
  11. CYCLOBENZAPRINE. [Concomitant]
     Active Substance: CYCLOBENZAPRINE
  12. LEVOTHYROXINE. [Concomitant]
     Active Substance: LEVOTHYROXINE
  13. MAG OXIDE [Concomitant]
     Active Substance: MAGNESIUM OXIDE
  14. CARTIA [Concomitant]
  15. LOSARTAN. [Concomitant]
     Active Substance: LOSARTAN
  16. TRULICITY [Concomitant]
     Active Substance: DULAGLUTIDE
  17. SIMVASTATIN. [Concomitant]
     Active Substance: SIMVASTATIN

REACTIONS (3)
  - Hypotension [None]
  - White blood cell count decreased [None]
  - Heart rate decreased [None]
